FAERS Safety Report 7545341-4 (Version None)
Quarter: 2011Q2

REPORT INFORMATION
  Report Type: 
  Country: None (occurrence: None)
  Receive Date: 20110613
  Receipt Date: 20110613
  Transmission Date: 20111010
  Serious: Yes (Other)
  Sender: FDA-Public Use
  Company Number: None

PATIENT
  Sex: Female
  Weight: 106.1417 kg

DRUGS (3)
  1. FLUOXETINE HCL [Concomitant]
  2. AVELOX [Suspect]
     Indication: ACUTE SINUSITIS
     Dosage: 1 TWICE DAILY PO
     Route: 048
     Dates: start: 20091217, end: 20100107
  3. ALAVERT [Concomitant]

REACTIONS (17)
  - MUSCULOSKELETAL PAIN [None]
  - TENDON PAIN [None]
  - CONDITION AGGRAVATED [None]
  - EXERCISE TOLERANCE DECREASED [None]
  - GAIT DISTURBANCE [None]
  - ARTHRALGIA [None]
  - SOMNOLENCE [None]
  - ACTIVITIES OF DAILY LIVING IMPAIRED [None]
  - TENDONITIS [None]
  - ROTATOR CUFF SYNDROME [None]
  - PAIN IN EXTREMITY [None]
  - FATIGUE [None]
  - DISCOMFORT [None]
  - EXOSTOSIS [None]
  - INFLAMMATION [None]
  - PERIARTHRITIS [None]
  - FLUID RETENTION [None]
